FAERS Safety Report 10344565 (Version 1)
Quarter: 2014Q3

REPORT INFORMATION
  Report Type: Spontaneous
  Country: US (occurrence: None)
  Receive Date: 20140724
  Receipt Date: 20140724
  Transmission Date: 20150326
  Serious: Yes (Other)
  Sender: FDA-Public Use
  Company Number: None

PATIENT
  Age: 87 Year
  Sex: Female
  Weight: 49.9 kg

DRUGS (6)
  1. FLECTORPAX [Concomitant]
  2. MIRTAZAPINE. [Concomitant]
     Active Substance: MIRTAZAPINE
  3. RISPERIDONE. [Suspect]
     Active Substance: RISPERIDONE
     Indication: ANGER
     Route: 048
     Dates: start: 20140307, end: 20140507
  4. RISPERIDONE. [Suspect]
     Active Substance: RISPERIDONE
     Indication: AGITATION
     Route: 048
     Dates: start: 20140307, end: 20140507
  5. DONEPEZIL [Concomitant]
     Active Substance: DONEPEZIL
  6. SEROQUEL [Concomitant]
     Active Substance: QUETIAPINE FUMARATE

REACTIONS (6)
  - Weight increased [None]
  - Feeling abnormal [None]
  - Agitation [None]
  - Anger [None]
  - Gait disturbance [None]
  - Appetite disorder [None]

NARRATIVE: CASE EVENT DATE: 20140307
